FAERS Safety Report 8916801 (Version 1)
Quarter: 2012Q4

REPORT INFORMATION
  Report Type: 
  Country: US (occurrence: US)
  Receive Date: 20121120
  Receipt Date: 20121120
  Transmission Date: 20130627
  Serious: Yes (Other)
  Sender: FDA-Public Use
  Company Number: US-CELGENEUS-163-21880-12112009

PATIENT
  Age: 65 Year
  Sex: Male
  Weight: 98.7 kg

DRUGS (9)
  1. REVLIMID [Suspect]
     Indication: MULTIPLE MYELOMA
     Route: 048
     Dates: start: 200903, end: 2009
  2. REVLIMID [Suspect]
     Route: 048
     Dates: start: 201107
  3. THALOMID [Suspect]
     Indication: MULTIPLE MYELOMA
     Route: 065
     Dates: start: 200611, end: 200808
  4. BORTEZOMIB [Concomitant]
     Indication: MULTIPLE MYELOMA
     Route: 065
     Dates: start: 200906, end: 200910
  5. BORTEZOMIB [Concomitant]
     Route: 065
     Dates: start: 201003, end: 201008
  6. BORTEZOMIB [Concomitant]
     Route: 065
     Dates: start: 201008, end: 201107
  7. DOXIL [Concomitant]
     Indication: MULTIPLE MYELOMA
     Route: 065
     Dates: start: 200906, end: 200907
  8. DEXAMETHASONE [Concomitant]
     Indication: MULTIPLE MYELOMA
     Route: 065
     Dates: start: 201003, end: 201008
  9. DEXAMETHASONE [Concomitant]
     Dosage: 2.8571 Milligram
     Route: 065
     Dates: start: 201107

REACTIONS (2)
  - Bladder transitional cell carcinoma [Unknown]
  - Basal cell carcinoma [Recovered/Resolved]
